FAERS Safety Report 6125029-7 (Version None)
Quarter: 2009Q1

REPORT INFORMATION
  Report Type: 
  Country: None (occurrence: None)
  Receive Date: 20090319
  Receipt Date: 20090312
  Transmission Date: 20090719
  Serious: Yes (Disabling)
  Sender: FDA-Public Use
  Company Number: DE-ABBOTT-04P-062-0274191-00

PATIENT
  Sex: Male
  Weight: 85 kg

DRUGS (9)
  1. HUMIRA [Suspect]
     Indication: RHEUMATOID ARTHRITIS
     Route: 058
     Dates: start: 20031212, end: 20040709
  2. HUMIRA [Suspect]
     Dates: start: 20050120
  3. METHOTREXATE [Concomitant]
     Indication: RHEUMATOID ARTHRITIS
     Dates: start: 19960606
  4. METHYLPREDNISOLONE 4MG TAB [Concomitant]
     Indication: RHEUMATOID ARTHRITIS
     Dates: start: 20031028
  5. NEXIUM [Concomitant]
     Indication: DRUG USE FOR UNKNOWN INDICATION
     Dates: start: 20011211
  6. PLEA RA [Concomitant]
     Indication: RHEUMATOID ARTHRITIS
     Dates: start: 20020711
  7. VIOXX [Concomitant]
     Indication: RHEUMATOID ARTHRITIS
     Dates: start: 20011105
  8. HUMIRA` [Concomitant]
     Indication: RHEUMATOID ARTHRITIS
     Route: 058
     Dates: start: 20031126
  9. OMEPRAZOLE [Concomitant]
     Indication: GASTROOESOPHAGEAL REFLUX DISEASE

REACTIONS (1)
  - PLASMACYTOMA [None]
